FAERS Safety Report 9115582 (Version 1)
Quarter: 2013Q1

REPORT INFORMATION
  Report Type: Spontaneous
  Country: US (occurrence: None)
  Receive Date: 20130128
  Receipt Date: 20130128
  Transmission Date: 20140127
  Serious: Yes (Other)
  Sender: FDA-Public Use
  Company Number: HA13-014-AE

PATIENT
  Age: 48 Year
  Sex: Male
  Weight: 83.92 kg

DRUGS (2)
  1. NAPROXEN SODIUM TABLETS, USP 550 MG (AMNEAL) [Suspect]
     Indication: BACK PAIN
     Dosage: 1 TABLET Q12H, ORAL
     Route: 048
     Dates: start: 20121211, end: 20130103
  2. NAPROXEN SODIUM TABLETS, USP 550 MG (AMNEAL) [Suspect]
     Indication: INFLAMMATION
     Dosage: 1 TABLET Q12H, ORAL
     Route: 048
     Dates: start: 20121211, end: 20130103

REACTIONS (5)
  - Alanine aminotransferase increased [None]
  - Aspartate aminotransferase increased [None]
  - Lipids increased [None]
  - Glycosylated haemoglobin increased [None]
  - Haematocrit decreased [None]
